FAERS Safety Report 17566353 (Version 1)
Quarter: 2020Q1

REPORT INFORMATION
  Report Type: Spontaneous
  Country: US (occurrence: US)
  Receive Date: 20200320
  Receipt Date: 20200320
  Transmission Date: 20200409
  Serious: No
  Sender: FDA-Public Use
  Company Number: US-SUNOVION-2020SUN000893

PATIENT
  Age: 67 Year
  Sex: Male
  Weight: 72.56 kg

DRUGS (2)
  1. LATUDA [Suspect]
     Active Substance: LURASIDONE HYDROCHLORIDE
     Indication: DEPRESSION
     Dosage: 40 MG UNK
     Route: 048
     Dates: start: 202002, end: 202003
  2. LATUDA [Suspect]
     Active Substance: LURASIDONE HYDROCHLORIDE
     Dosage: 20 MG UNK
     Route: 048
     Dates: start: 2019, end: 202002

REACTIONS (3)
  - Dyskinesia [Unknown]
  - Off label use [Unknown]
  - Dysphagia [Unknown]

NARRATIVE: CASE EVENT DATE: 202002
